FAERS Safety Report 13384582 (Version 1)
Quarter: 2017Q1

REPORT INFORMATION
  Report Type: Spontaneous
  Country: US (occurrence: US)
  Receive Date: 20170329
  Receipt Date: 20170329
  Transmission Date: 20170429
  Serious: Yes (Disabling)
  Sender: FDA-Public Use
  Company Number: None

PATIENT
  Age: 65 Year
  Weight: 121.5 kg

DRUGS (2)
  1. DAILY VITAMINS ^ONE A DAY^ [Concomitant]
     Active Substance: VITAMINS
  2. LEVOVFLOXACIN [Suspect]
     Active Substance: LEVOFLOXACIN
     Indication: DIVERTICULITIS
     Dosage: ?          QUANTITY:10 TABLET(S);?
     Route: 048
     Dates: start: 20160223, end: 20160305

REACTIONS (6)
  - Muscle spasms [None]
  - Pain in extremity [None]
  - Abdominal distension [None]
  - Fatigue [None]
  - Confusional state [None]
  - Alopecia [None]

NARRATIVE: CASE EVENT DATE: 20160224
